FAERS Safety Report 9727098 (Version 2)
Quarter: 2014Q1

REPORT INFORMATION
  Report Type: Spontaneous
  Country: US (occurrence: US)
  Receive Date: 20131203
  Receipt Date: 20140326
  Transmission Date: 20141002
  Serious: Yes (Other)
  Sender: FDA-Public Use
  Company Number: US-BAYER-2013-143930

PATIENT
  Age: 31 Year
  Sex: Female
  Weight: 63.95 kg

DRUGS (4)
  1. YAZ [Suspect]
     Route: 048
  2. YASMIN [Suspect]
     Route: 048
  3. ASTELIN [Concomitant]
  4. SYMBICORT [Concomitant]

REACTIONS (2)
  - Gallbladder injury [None]
  - Gallbladder disorder [None]
